FAERS Safety Report 7715150-1 (Version None)
Quarter: 2011Q3

REPORT INFORMATION
  Report Type: 
  Country: None (occurrence: None)
  Receive Date: 20110829
  Receipt Date: 20110819
  Transmission Date: 20111222
  Serious: Yes (Hospitalization)
  Sender: FDA-Public Use
  Company Number: FR-BRISTOL-MYERS SQUIBB COMPANY-16008906

PATIENT
  Age: 71 Year
  Sex: Female

DRUGS (7)
  1. SITAGLIPTIN PHOSPHATE [Suspect]
     Route: 048
  2. PLAVIX [Suspect]
     Dosage: 75 MG COATED TABLET
     Route: 048
  3. METFORMIN HCL [Suspect]
     Route: 048
  4. LEVOTHYROXINE SODIUM [Suspect]
     Dosage: STRENGTH-150 MCG.
     Route: 048
  5. COLCHICINE [Suspect]
     Dates: start: 20110301
  6. REPAGLINIDE [Suspect]
     Route: 048
  7. BISOPROLOL FUMARATE [Concomitant]
     Route: 048

REACTIONS (2)
  - HYPERURICAEMIA [None]
  - VASCULAR PURPURA [None]
